FAERS Safety Report 8540862-X (Version None)
Quarter: 2012Q3

REPORT INFORMATION
  Report Type: 
  Country: None (occurrence: None)
  Receive Date: 20120726
  Receipt Date: 20120625
  Transmission Date: 20120928
  Serious: No
  Sender: FDA-Public Use
  Company Number: US-ASTRAZENECA-2012SE22795

PATIENT
  Age: 84 Year
  Sex: Female

DRUGS (3)
  1. CRESTOR [Suspect]
     Route: 048
     Dates: start: 20110701
  2. RAMIPRIL [Concomitant]
  3. LISINOPRIL [Concomitant]

REACTIONS (3)
  - CARDIOVASCULAR DISORDER [None]
  - HYPERTONIC BLADDER [None]
  - HYPERCHOLESTEROLAEMIA [None]
